FAERS Safety Report 25528663 (Version 1)
Quarter: 2025Q3

REPORT INFORMATION
  Report Type: Spontaneous
  Country: EU (occurrence: EU)
  Receive Date: 20250708
  Receipt Date: 20250708
  Transmission Date: 20251021
  Serious: Yes (Life-Threatening, Other)
  Sender: TAKEDA
  Company Number: None

PATIENT
  Age: 73 Year
  Sex: Male
  Weight: 69 kg

DRUGS (2)
  1. ALOGLIPTIN BENZOATE\PIOGLITAZONE HYDROCHLORIDE [Suspect]
     Active Substance: ALOGLIPTIN BENZOATE\PIOGLITAZONE HYDROCHLORIDE
     Indication: Type 2 diabetes mellitus
     Dosage: 1 DOSAGE FORM, QD
     Dates: start: 20200217, end: 20250529
  2. AMLODIPINE BESYLATE\VALSARTAN [Concomitant]
     Active Substance: AMLODIPINE BESYLATE\VALSARTAN
     Indication: Hypertension

REACTIONS (1)
  - Bladder cancer [Unknown]

NARRATIVE: CASE EVENT DATE: 20250527
